FAERS Safety Report 7288573-5 (Version None)
Quarter: 2011Q1

REPORT INFORMATION
  Report Type: 
  Country: None (occurrence: None)
  Receive Date: 20110211
  Receipt Date: 20110131
  Transmission Date: 20110831
  Serious: Yes (Life-Threatening, Hospitalization, Other)
  Sender: FDA-Public Use
  Company Number: JP-JNJFOC-20080405697

PATIENT
  Sex: Male
  Weight: 35.3 kg

DRUGS (22)
  1. REMICADE [Suspect]
     Route: 042
  2. ENSURE [Concomitant]
     Route: 048
  3. REMICADE [Suspect]
     Indication: INFLAMMATORY BOWEL DISEASE
     Route: 042
  4. CORTRIL [Concomitant]
     Dosage: EVERY OTHER DAY
     Route: 048
  5. REMICADE [Suspect]
     Route: 042
  6. IMURAN [Suspect]
     Route: 048
  7. ALFAROL [Concomitant]
     Indication: ILL-DEFINED DISORDER
     Route: 048
  8. GLAKAY [Concomitant]
     Route: 048
  9. VITAMIN K TAB [Concomitant]
     Indication: ILL-DEFINED DISORDER
  10. PENTASA [Concomitant]
     Indication: INFLAMMATORY BOWEL DISEASE
     Route: 048
  11. REMICADE [Suspect]
     Route: 042
  12. REMICADE [Suspect]
     Route: 042
  13. IMURAN [Suspect]
     Indication: INFLAMMATORY BOWEL DISEASE
     Route: 048
  14. IMURAN [Suspect]
     Route: 048
  15. REMICADE [Suspect]
     Route: 042
  16. REMICADE [Suspect]
     Route: 042
  17. REMICADE [Suspect]
     Route: 042
  18. BAKTAR [Concomitant]
     Dosage: 2 TIMES/W (1 TAB IN THE MORNING, 0.5 TAB IN THE EVENING)
     Route: 048
  19. PREDNISOLONE [Concomitant]
     Indication: INFLAMMATORY BOWEL DISEASE
     Route: 048
  20. REMICADE [Suspect]
     Route: 042
  21. BAKTAR [Concomitant]
     Route: 048
  22. MESALAMINE [Concomitant]
     Indication: COLITIS

REACTIONS (4)
  - SEPSIS [None]
  - DISSEMINATED INTRAVASCULAR COAGULATION [None]
  - CALCULUS URINARY [None]
  - COLITIS [None]
